FAERS Safety Report 16040604 (Version 1)
Quarter: 2019Q1

REPORT INFORMATION
  Report Type: Spontaneous
  Country: US (occurrence: US)
  Receive Date: 20190306
  Receipt Date: 20190306
  Transmission Date: 20190418
  Serious: No
  Sender: FDA-Public Use
  Company Number: US-APOTEX-2018AP022813

PATIENT
  Age: 50 Year
  Sex: Female

DRUGS (22)
  1. OXCARBAZEPINE. [Suspect]
     Active Substance: OXCARBAZEPINE
     Indication: NEURALGIA
  2. HYDROCODONE BITARTRATE AND ACETAMINOPHEN [Suspect]
     Active Substance: ACETAMINOPHEN\HYDROCODONE BITARTRATE
     Indication: NEURALGIA
  3. GABAPENTIN. [Suspect]
     Active Substance: GABAPENTIN
     Indication: TOOTHACHE
     Dosage: UNK, UNKNOWN
     Route: 065
  4. OXYCODONE AND ACETAMINOPHEN [Suspect]
     Active Substance: ACETAMINOPHEN\OXYCODONE HYDROCHLORIDE
     Indication: TOOTHACHE
     Dosage: 7.5 MG/500 MG
     Route: 065
  5. CARBAMAZEPINE. [Suspect]
     Active Substance: CARBAMAZEPINE
     Indication: TOOTHACHE
     Dosage: UNK, UNKNOWN
     Route: 065
  6. TOPIRAMATE. [Suspect]
     Active Substance: TOPIRAMATE
     Indication: TOOTHACHE
     Dosage: UPTO 100 MG
     Route: 065
  7. OXCARBAZEPINE. [Suspect]
     Active Substance: OXCARBAZEPINE
     Indication: TOOTHACHE
     Dosage: UNK, UNKNOWN
     Route: 065
  8. TRAMADOL/ACETAMINOPHEN [Suspect]
     Active Substance: ACETAMINOPHEN\TRAMADOL
     Indication: TOOTHACHE
     Dosage: 37.5 MG/325 MG
     Route: 065
  9. TRAMADOL/ACETAMINOPHEN [Suspect]
     Active Substance: ACETAMINOPHEN\TRAMADOL
     Indication: NEURALGIA
  10. TOPIRAMATE. [Suspect]
     Active Substance: TOPIRAMATE
     Indication: NEURALGIA
  11. BACLOFEN. [Suspect]
     Active Substance: BACLOFEN
     Indication: NEURALGIA
     Dosage: 40 MG, UNK
     Route: 065
  12. OXYCODONE AND ACETAMINOPHEN [Suspect]
     Active Substance: ACETAMINOPHEN\OXYCODONE HYDROCHLORIDE
     Indication: NEURALGIA
  13. CARBAMAZEPINE. [Suspect]
     Active Substance: CARBAMAZEPINE
     Indication: NEURALGIA
  14. BACLOFEN. [Suspect]
     Active Substance: BACLOFEN
     Indication: TOOTHACHE
     Dosage: UP TO 40 MG
     Route: 065
  15. PREGABALINE [Suspect]
     Active Substance: PREGABALIN
     Indication: NEURALGIA
  16. HYDROCODONE BITARTRATE AND ACETAMINOPHEN [Suspect]
     Active Substance: ACETAMINOPHEN\HYDROCODONE BITARTRATE
     Indication: TOOTHACHE
     Dosage: 5MG/300 MG
     Route: 065
  17. GABAPENTIN. [Suspect]
     Active Substance: GABAPENTIN
     Indication: NEURALGIA
  18. AMITRIPTYLINE EMBONATE (AMITRIPTYLINE PAMOATE) [Suspect]
     Active Substance: AMITRIPTYLINE PAMOATE
     Indication: NEURALGIA
  19. PREGABALINE [Suspect]
     Active Substance: PREGABALIN
     Indication: TOOTHACHE
     Dosage: UP TO 300 MG
     Route: 065
  20. TIZANIDINE. [Suspect]
     Active Substance: TIZANIDINE
     Indication: TOOTHACHE
     Dosage: 2 MG AT BEDTIME
     Route: 065
  21. TIZANIDINE. [Suspect]
     Active Substance: TIZANIDINE
     Indication: NEURALGIA
  22. AMITRIPTYLINE EMBONATE (AMITRIPTYLINE PAMOATE) [Suspect]
     Active Substance: AMITRIPTYLINE PAMOATE
     Indication: TOOTHACHE
     Dosage: UP TO 60 MG
     Route: 065

REACTIONS (2)
  - Adverse drug reaction [Unknown]
  - Treatment failure [Unknown]
